FAERS Safety Report 13214399 (Version 1)
Quarter: 2017Q1

REPORT INFORMATION
  Report Type: Spontaneous
  Country: US (occurrence: US)
  Receive Date: 20170209
  Receipt Date: 20170209
  Transmission Date: 20170428
  Serious: No
  Sender: FDA-Public Use
  Company Number: US-ALLERGAN-1669752US

PATIENT
  Age: 79 Year
  Sex: Female
  Weight: 54.42 kg

DRUGS (2)
  1. BOTOX [Suspect]
     Active Substance: ONABOTULINUMTOXINA
     Indication: MUSCLE SPASMS
     Dosage: UNK UNK, SINGLE
     Route: 030
     Dates: start: 20160919, end: 20160919
  2. BOTOX [Suspect]
     Active Substance: ONABOTULINUMTOXINA
     Indication: FOOT DEFORMITY
     Dosage: UNK, SINGLE
     Route: 030
     Dates: start: 20160919, end: 20160919

REACTIONS (4)
  - Back pain [Not Recovered/Not Resolved]
  - Drug ineffective for unapproved indication [Unknown]
  - Pain in extremity [Not Recovered/Not Resolved]
  - Off label use [Unknown]

NARRATIVE: CASE EVENT DATE: 20160919
